FAERS Safety Report 23640683 (Version 3)
Quarter: 2024Q4

REPORT INFORMATION
  Report Type: Report from Study
  Country: ES (occurrence: ES)
  Receive Date: 20240318
  Receipt Date: 20241014
  Transmission Date: 20250114
  Serious: Yes (Hospitalization)
  Sender: JAZZ
  Company Number: ES-JAZZ PHARMACEUTICALS-2024-ES-004531

PATIENT

DRUGS (2)
  1. LURBINECTEDIN [Suspect]
     Active Substance: LURBINECTEDIN
     Indication: Lung neoplasm malignant
     Dosage: 5.08 MILLIGRAM
     Route: 042
     Dates: start: 20240227, end: 20240227
  2. ATEZOLIZUMAB [Suspect]
     Active Substance: ATEZOLIZUMAB
     Indication: Lung neoplasm malignant
     Dosage: 1200 MILLIGRAM PER MILLILITRE
     Route: 042
     Dates: start: 20240227, end: 20240227

REACTIONS (3)
  - Asthenia [Recovered/Resolved]
  - Nausea [Recovered/Resolved]
  - Vomiting [Recovered/Resolved]

NARRATIVE: CASE EVENT DATE: 20240228
